FAERS Safety Report 24204554 (Version 1)
Quarter: 2024Q3

REPORT INFORMATION
  Report Type: Other
  Country: US (occurrence: US)
  Receive Date: 20240813
  Receipt Date: 20240813
  Transmission Date: 20241017
  Serious: Yes (Hospitalization)
  Sender: ORBION PHARMACEUTICALS
  Company Number: US-OrBion Pharmaceuticals Private Limited-2160333

PATIENT
  Age: 28 Year
  Sex: Male

DRUGS (1)
  1. AMLODIPINE BESYLATE [Suspect]
     Active Substance: AMLODIPINE BESYLATE
     Indication: Intentional overdose
     Route: 065

REACTIONS (8)
  - Intentional overdose [Recovered/Resolved]
  - Vasoplegia syndrome [Recovered/Resolved]
  - Shock [Recovered/Resolved]
  - Multiple organ dysfunction syndrome [Recovered/Resolved]
  - Hypothermia [Recovered/Resolved]
  - Hypotension [Recovered/Resolved]
  - Mental status changes [Recovered/Resolved]
  - Depressed level of consciousness [Recovered/Resolved]
